FAERS Safety Report 16019565 (Version 2)
Quarter: 2019Q1

REPORT INFORMATION
  Report Type: Spontaneous
  Country: US (occurrence: US)
  Receive Date: 20190228
  Receipt Date: 20190311
  Transmission Date: 20190418
  Serious: No
  Sender: FDA-Public Use
  Company Number: US-009507513-1902USA008550

PATIENT
  Age: 83 Year
  Weight: 89.8 kg

DRUGS (20)
  1. OMEPRAZOLE. [Concomitant]
     Active Substance: OMEPRAZOLE
     Dosage: 40 MILLIGRAM, QD BEFORE BREAKFAST
  2. LANTUS [Concomitant]
     Active Substance: INSULIN GLARGINE
     Dosage: 16 UNITS AT BEDTIME
     Route: 058
  3. HYDRALAZINE [Concomitant]
     Active Substance: HYDRALAZINE HYDROCHLORIDE
  4. HYDROCERIN CREAM [Concomitant]
     Dosage: UNK, QD
     Route: 061
  5. CALCITRIOL. [Concomitant]
     Active Substance: CALCITRIOL
     Dosage: UNK, QD
     Route: 048
  6. FERROUS SULFATE. [Concomitant]
     Active Substance: FERROUS SULFATE
     Dosage: 1 DOSAGE FORM, QD
     Route: 048
  7. DONEPEZIL. [Concomitant]
     Active Substance: DONEPEZIL
     Dosage: 1 DOSAGE FORM, QD, EVERY NIGHT AT BEDTIME
  8. TAMSULOSIN HYDROCHLORIDE. [Concomitant]
     Active Substance: TAMSULOSIN HYDROCHLORIDE
     Dosage: EVERY NIGHT AT BEDTIME
     Route: 048
  9. BENGAY (MENTHOL) [Concomitant]
     Indication: NECK PAIN
  10. CEPHALEXIN. [Concomitant]
     Active Substance: CEPHALEXIN
     Dosage: UNK, QD
     Route: 048
  11. MEMANTINE. [Concomitant]
     Active Substance: MEMANTINE
     Dosage: 1 DOSAGE FORM EVERY TIME AT BEDTIME
     Route: 048
  12. NITROGLYCERIN. [Concomitant]
     Active Substance: NITROGLYCERIN
     Indication: CHEST PAIN
     Dosage: UNK UNK, TID AS NEEDED
  13. NITRO-DUR [Concomitant]
     Active Substance: NITROGLYCERIN
     Dosage: 1 PATCH EVERY MORNING AND REMOVE AT BEDTIME
     Route: 061
  14. ELIQUIS [Concomitant]
     Active Substance: APIXABAN
     Route: 048
  15. MAPAP [Concomitant]
     Active Substance: ACETAMINOPHEN
     Indication: PYREXIA
  16. NOVO-METOPROL [Concomitant]
     Active Substance: METOPROLOL TARTRATE
     Dosage: UNK, BID
  17. PROAIR HFA [Concomitant]
     Active Substance: ALBUTEROL SULFATE
     Dosage: 2 PUFFS EVERY 4 HRS AS NEEDED
  18. MAPAP [Concomitant]
     Active Substance: ACETAMINOPHEN
     Indication: PAIN
     Dosage: 2 TABLETS EVERY SIX HOURS
  19. ASMANEX [Suspect]
     Active Substance: MOMETASONE FUROATE
     Dosage: 2 PUFFS QHS
     Route: 055
  20. LACTASE [Concomitant]
     Active Substance: LACTASE
     Dosage: UNK, TID
     Route: 048

REACTIONS (5)
  - Product quality issue [Unknown]
  - Product dose omission [Unknown]
  - No adverse event [Unknown]
  - Circumstance or information capable of leading to medication error [Unknown]
  - Product container issue [Unknown]

NARRATIVE: CASE EVENT DATE: 20190214
